FAERS Safety Report 10358551 (Version 7)
Quarter: 2016Q2

REPORT INFORMATION
  Report Type: Report from Study
  Country: GB (occurrence: GB)
  Receive Date: 20140803
  Receipt Date: 20160501
  Transmission Date: 20160815
  Serious: Yes (Hospitalization)
  Sender: FDA-Public Use
  Company Number: GB-009507513-1407GBR012666

PATIENT
  Age: 52 Year
  Sex: Male

DRUGS (6)
  1. VORINOSTAT [Suspect]
     Active Substance: VORINOSTAT
     Indication: PLASMA CELL MYELOMA
     Dosage: CYCLICAL, DAY 1-7, 15-21
     Route: 048
     Dates: start: 20140222, end: 201407
  2. LENALIDOMIDE [Suspect]
     Active Substance: LENALIDOMIDE
     Dosage: LAST DOSE 5 MG ON 22-DEC-2014 BEFORE UPPER RESPIRATORY INFECTION BECAME SERIOUS, CYCLICAL, DAY 1-21
     Route: 048
     Dates: start: 2014, end: 20141222
  3. VORINOSTAT [Suspect]
     Active Substance: VORINOSTAT
     Dosage: 200 MG ON 25-DEC-2014 BEFORE UPPER RESPIRATORY INFECTION BECAME SERIOUS, CYCLICAL, DAY 1-7, 15-21
     Route: 048
     Dates: start: 2014, end: 20141225
  4. LENALIDOMIDE [Suspect]
     Active Substance: LENALIDOMIDE
     Dosage: LAST DOSE 10 MG BEFORE FEBRILE NEUTROPENIA BECAME SERIOUS
     Dates: start: 20140723, end: 20140723
  5. VORINOSTAT [Suspect]
     Active Substance: VORINOSTAT
     Dosage: 300 MG BEFORE FEBRILE NEUTROPENIA BECAME SERIOUS
     Route: 048
     Dates: start: 20140723, end: 20140723
  6. LENALIDOMIDE [Suspect]
     Active Substance: LENALIDOMIDE
     Indication: PLASMA CELL MYELOMA
     Dosage: CYCLICAL, DAY 1-21
     Route: 048
     Dates: start: 20130405, end: 201407

REACTIONS (2)
  - Upper respiratory tract infection [Recovered/Resolved]
  - Febrile neutropenia [Recovered/Resolved]

NARRATIVE: CASE EVENT DATE: 20140720
